FAERS Safety Report 11314241 (Version 2)
Quarter: 2016Q3

REPORT INFORMATION
  Report Type: Report from Study
  Country: None (occurrence: US)
  Receive Date: 20150727
  Receipt Date: 20160725
  Transmission Date: 20161109
  Serious: No
  Sender: FDA-Public Use
  Company Number: US-GALDERMA-US15001969

PATIENT
  Age: 24 Year
  Sex: Female

DRUGS (2)
  1. DIFFERIN [Suspect]
     Active Substance: ADAPALENE
     Dosage: 0.1%
     Route: 061
     Dates: start: 20150217, end: 20150331
  2. ONE-A-DAY NOS [Concomitant]
     Active Substance: MINERALS\VITAMINS
     Indication: PREGNANCY
     Dosage: 2 TABS ONCE DAILY
     Route: 048
     Dates: start: 20150323

REACTIONS (2)
  - Exposure during pregnancy [Not Recovered/Not Resolved]
  - Delivery [Recovered/Resolved]

NARRATIVE: CASE EVENT DATE: 20150223
